APPROVED DRUG PRODUCT: XIMINO
Active Ingredient: MINOCYCLINE HYDROCHLORIDE
Strength: EQ 90MG BASE
Dosage Form/Route: CAPSULE, EXTENDED RELEASE;ORAL
Application: N201922 | Product #003
Applicant: JOURNEY MEDICAL CORP
Approved: Jul 11, 2012 | RLD: No | RS: No | Type: DISCN

PATENTS:
Patent 7544373 | Expires: Apr 2, 2027
Patent 7541347 | Expires: Apr 2, 2027
Patent 7919483 | Expires: Mar 7, 2027